FAERS Safety Report 12162332 (Version 1)
Quarter: 2016Q1

REPORT INFORMATION
  Report Type: Spontaneous
  Country: US (occurrence: US)
  Receive Date: 20160309
  Receipt Date: 20160309
  Transmission Date: 20160526
  Serious: No
  Sender: FDA-Public Use
  Company Number: US-CELGENEUS-USA-2016031430

PATIENT
  Age: 57 Year
  Sex: Female
  Weight: 68.1 kg

DRUGS (1)
  1. OTEZLA [Suspect]
     Active Substance: APREMILAST
     Indication: PSORIASIS
     Dosage: 60 MILLIGRAM
     Route: 048
     Dates: start: 201601

REACTIONS (4)
  - Infection [Recovered/Resolved]
  - Mouth swelling [Not Recovered/Not Resolved]
  - Tooth disorder [Not Recovered/Not Resolved]
  - Lip blister [Not Recovered/Not Resolved]

NARRATIVE: CASE EVENT DATE: 20160122
